FAERS Safety Report 11506760 (Version 1)
Quarter: 2015Q3

REPORT INFORMATION
  Report Type: Spontaneous
  Country: CA (occurrence: CA)
  Receive Date: 20150915
  Receipt Date: 20150915
  Transmission Date: 20151125
  Serious: Yes (Other)
  Sender: FDA-Public Use
  Company Number: CA-ROCHE-1631758

PATIENT
  Age: 38 Year
  Sex: Female

DRUGS (10)
  1. CLOZAPINE. [Suspect]
     Active Substance: CLOZAPINE
     Indication: PSYCHOTIC DISORDER
  2. PROPRANOLOL [Concomitant]
     Active Substance: PROPRANOLOL\PROPRANOLOL HYDROCHLORIDE
     Indication: PRODUCT USED FOR UNKNOWN INDICATION
     Route: 065
  3. HALOPERIDOL. [Suspect]
     Active Substance: HALOPERIDOL
     Indication: SCHIZOPHRENIA
     Route: 065
  4. CLONAZEPAM. [Suspect]
     Active Substance: CLONAZEPAM
     Indication: AKATHISIA
     Route: 065
  5. DIMENHYDRINATE. [Suspect]
     Active Substance: DIMENHYDRINATE
     Indication: NAUSEA
     Route: 065
  6. ZUCLOPENTHIXOL [Suspect]
     Active Substance: ZUCLOPENTHIXOL
     Indication: SCHIZOPHRENIA
     Route: 030
  7. CLOZAPINE. [Suspect]
     Active Substance: CLOZAPINE
     Indication: SCHIZOPHRENIA
     Route: 065
  8. CITALOPRAM [Suspect]
     Active Substance: CITALOPRAM HYDROBROMIDE
     Indication: SCHIZOPHRENIA
     Route: 065
  9. DIMENHYDRINATE. [Suspect]
     Active Substance: DIMENHYDRINATE
     Indication: EPIGASTRIC DISCOMFORT
  10. ZUCLOPENTHIXOL [Suspect]
     Active Substance: ZUCLOPENTHIXOL
     Route: 030

REACTIONS (17)
  - Delirium [Not Recovered/Not Resolved]
  - Hallucinations, mixed [Not Recovered/Not Resolved]
  - Tachycardia [Not Recovered/Not Resolved]
  - Therapeutic response decreased [Not Recovered/Not Resolved]
  - Drug dependence [Unknown]
  - Disorientation [Not Recovered/Not Resolved]
  - Irritability [Not Recovered/Not Resolved]
  - Overdose [Unknown]
  - Psychotic disorder [Not Recovered/Not Resolved]
  - Schizophrenia, disorganised type [Not Recovered/Not Resolved]
  - Akathisia [Not Recovered/Not Resolved]
  - Confusional state [Not Recovered/Not Resolved]
  - Hypotension [Not Recovered/Not Resolved]
  - Persecutory delusion [Not Recovered/Not Resolved]
  - Sedation [Not Recovered/Not Resolved]
  - Drug withdrawal syndrome [Unknown]
  - Gastrooesophageal reflux disease [Not Recovered/Not Resolved]
